FAERS Safety Report 16073836 (Version 2)
Quarter: 2019Q1

REPORT INFORMATION
  Report Type: Spontaneous
  Country: BR (occurrence: BR)
  Receive Date: 20190314
  Receipt Date: 20190328
  Transmission Date: 20190418
  Serious: No
  Sender: FDA-Public Use
  Company Number: BR-PFIZER INC-2019109327

PATIENT
  Age: 79 Year
  Sex: Female

DRUGS (4)
  1. TALIGLUCERASE ALFA [Suspect]
     Active Substance: TALIGLUCERASE ALFA
     Indication: GAUCHER^S DISEASE
     Dosage: 36 IU/KG EVERY 15 DAYS
     Route: 042
     Dates: start: 2014
  2. ISOSORBIDE MONONITRATE. [Concomitant]
     Active Substance: ISOSORBIDE MONONITRATE
  3. VILDAGLIPTIN [Concomitant]
     Active Substance: VILDAGLIPTIN
  4. NITRENDIPINE [Concomitant]
     Active Substance: NITRENDIPINE

REACTIONS (1)
  - No adverse event [Unknown]
